FAERS Safety Report 9656543 (Version 3)
Quarter: 2013Q4

REPORT INFORMATION
  Report Type: Report from Study
  Country: PH (occurrence: PH)
  Receive Date: 20131030
  Receipt Date: 20131202
  Transmission Date: 20140711
  Serious: Yes (Other)
  Sender: FDA-Public Use
  Company Number: PHHY2012PH078769

PATIENT
  Age: 37 Year
  Sex: Female

DRUGS (7)
  1. TASIGNA [Suspect]
     Indication: CHRONIC MYELOID LEUKAEMIA
     Dosage: 800 MG, DAILY
     Route: 048
     Dates: start: 20101106, end: 20101117
  2. TASIGNA [Suspect]
     Dosage: 800 MG, PER DAY
     Route: 048
     Dates: start: 20101123, end: 20101130
  3. TASIGNA [Suspect]
     Dosage: 400 MG, DAILY
     Route: 048
     Dates: start: 20110419, end: 20111122
  4. TASIGNA [Suspect]
     Dosage: 400 MG, DAILY
     Dates: start: 20120224, end: 20120601
  5. TASIGNA [Suspect]
     Dosage: 600 MG, DAILY
     Dates: start: 20120602, end: 20121213
  6. TASIGNA [Suspect]
     Dosage: 400 MG, DAILY
     Dates: start: 20121214, end: 20130131
  7. TASIGNA [Suspect]
     Dosage: 800 MG, DAILY
     Dates: start: 20130810

REACTIONS (5)
  - Pancytopenia [Unknown]
  - Leukopenia [Recovered/Resolved]
  - White blood cell count increased [Recovered/Resolved]
  - Platelet count increased [Recovered/Resolved]
  - Rash pruritic [Recovering/Resolving]
